FAERS Safety Report 25785566 (Version 1)
Quarter: 2025Q3

REPORT INFORMATION
  Report Type: Report from Study
  Country: US (occurrence: US)
  Receive Date: 20250910
  Receipt Date: 20250910
  Transmission Date: 20251020
  Serious: Yes (Death, Other)
  Sender: TAKEDA
  Company Number: US-TAKEDA-2025TUS065383

PATIENT
  Age: 65 Year
  Sex: Male
  Weight: 78.912 kg

DRUGS (2)
  1. FRUQUINTINIB [Suspect]
     Active Substance: FRUQUINTINIB
     Indication: Colon cancer
  2. FRUQUINTINIB [Suspect]
     Active Substance: FRUQUINTINIB

REACTIONS (4)
  - Death [Fatal]
  - Abdominal distension [Unknown]
  - Activities of daily living decreased [Unknown]
  - Laziness [Unknown]

NARRATIVE: CASE EVENT DATE: 20250701
